FAERS Safety Report 7382947-X (Version None)
Quarter: 2011Q1

REPORT INFORMATION
  Report Type: 
  Country: None (occurrence: None)
  Receive Date: 20110330
  Receipt Date: 20110322
  Transmission Date: 20110831
  Serious: Yes (Hospitalization, Other)
  Sender: FDA-Public Use
  Company Number: US-ASTRAZENECA-2007UW21657

PATIENT
  Age: 550 Month
  Sex: Female

DRUGS (49)
  1. SEROQUEL [Suspect]
     Dosage: 100-700 MG
     Route: 048
     Dates: start: 20020226, end: 20050101
  2. SEROQUEL [Suspect]
     Dosage: 100-700 MG
     Route: 048
     Dates: start: 20020226, end: 20050101
  3. SEROQUEL [Suspect]
     Dosage: 100 TO 400 MG
     Route: 048
     Dates: start: 20031126
  4. SEROQUEL [Suspect]
     Route: 048
     Dates: start: 20061019
  5. GEODON [Concomitant]
     Dates: start: 20061128
  6. LIPITOR [Concomitant]
     Dates: start: 20060216
  7. RISPERDAL [Concomitant]
     Indication: DEPRESSION
     Dates: start: 20010712, end: 20010801
  8. RISPERDAL [Concomitant]
     Indication: BIPOLAR DISORDER
     Dates: start: 20010712, end: 20010801
  9. PREVACID [Concomitant]
     Dates: start: 20081006
  10. SEROQUEL [Suspect]
     Indication: SLEEP DISORDER
     Dosage: 100 MG - 200 MG
     Route: 048
     Dates: start: 20020201, end: 20070401
  11. SEROQUEL [Suspect]
     Dosage: 100 TO 400 MG
     Route: 048
     Dates: start: 20031126
  12. PREVACID [Concomitant]
     Dates: start: 20091214
  13. DIOVAN [Concomitant]
     Dates: start: 20081006
  14. SEROQUEL [Suspect]
     Dosage: 100MG-700 MG
     Route: 048
     Dates: start: 20020226, end: 20051201
  15. SEROQUEL [Suspect]
     Dosage: 100MG-700 MG
     Route: 048
     Dates: start: 20020226, end: 20051201
  16. SEROQUEL [Suspect]
     Indication: SCHIZOPHRENIA
     Dosage: 100 MG - 200 MG
     Route: 048
     Dates: start: 20020201, end: 20070401
  17. SEROQUEL [Suspect]
     Dosage: 100-700 MG
     Route: 048
     Dates: start: 20020226, end: 20050101
  18. SEROQUEL [Suspect]
     Dosage: 50 TO 400 MG
     Route: 048
     Dates: start: 20020802
  19. SEROQUEL [Suspect]
     Dosage: 50 TO 400 MG
     Route: 048
     Dates: start: 20020802
  20. SEROQUEL [Suspect]
     Dosage: 100 TO 400 MG
     Route: 048
     Dates: start: 20031126
  21. SEROQUEL [Suspect]
     Route: 048
     Dates: start: 20061019
  22. SYNTHROID [Concomitant]
     Dates: start: 20060216
  23. ZETIA [Concomitant]
     Dates: start: 20060216
  24. SEROQUEL [Suspect]
     Dosage: 100MG-700 MG
     Route: 048
     Dates: start: 20020226, end: 20051201
  25. SEROQUEL [Suspect]
     Dosage: 50 TO 400 MG
     Route: 048
     Dates: start: 20020802
  26. SEROQUEL [Suspect]
     Route: 048
     Dates: start: 20061019
  27. RISPERDAL [Concomitant]
     Indication: SCHIZOPHRENIA
     Dates: start: 20010712, end: 20010801
  28. SEROQUEL [Suspect]
     Indication: DEPRESSION
     Dosage: 100 MG - 200 MG
     Route: 048
     Dates: start: 20020201, end: 20070401
  29. SEROQUEL [Suspect]
     Dosage: 100-700 MG
     Route: 048
     Dates: start: 20020226, end: 20050101
  30. SEROQUEL [Suspect]
     Dosage: 100-700 MG
     Route: 048
     Dates: start: 20020226, end: 20050101
  31. PROZAC [Concomitant]
     Dates: start: 20061128
  32. NEXIUM [Concomitant]
     Dates: start: 20060216
  33. SEROQUEL [Suspect]
     Dosage: 100MG-700 MG
     Route: 048
     Dates: start: 20020226, end: 20051201
  34. SEROQUEL [Suspect]
     Dosage: 100 TO 400 MG
     Route: 048
     Dates: start: 20031126
  35. PROZAC [Concomitant]
     Dates: start: 20031126
  36. ABILIFY [Concomitant]
     Dates: start: 20081006
  37. METOPROLOL TART [Concomitant]
     Dates: start: 20061019
  38. PLAVIX [Concomitant]
     Dates: start: 20091214
  39. SEROQUEL [Suspect]
     Indication: ANXIETY
     Dosage: 100 MG - 200 MG
     Route: 048
     Dates: start: 20020201, end: 20070401
  40. SEROQUEL [Suspect]
     Indication: BIPOLAR DISORDER
     Dosage: 100 MG - 200 MG
     Route: 048
     Dates: start: 20020201, end: 20070401
  41. SEROQUEL [Suspect]
     Dosage: 100MG-700 MG
     Route: 048
     Dates: start: 20020226, end: 20051201
  42. SEROQUEL [Suspect]
     Dosage: 50 TO 400 MG
     Route: 048
     Dates: start: 20020802
  43. SEROQUEL [Suspect]
     Dosage: 50 TO 400 MG
     Route: 048
     Dates: start: 20020802
  44. SEROQUEL [Suspect]
     Dosage: 100 TO 400 MG
     Route: 048
     Dates: start: 20031126
  45. SEROQUEL [Suspect]
     Route: 048
     Dates: start: 20061019
  46. SEROQUEL [Suspect]
     Route: 048
     Dates: start: 20061019
  47. LIPITOR [Concomitant]
     Dates: start: 20081006
  48. ABILIFY [Concomitant]
     Dates: start: 20070828
  49. PANTOPRAZOLE [Concomitant]
     Dates: start: 20061017

REACTIONS (15)
  - TYPE 2 DIABETES MELLITUS [None]
  - PANCREATIC DISORDER [None]
  - HYPERLIPIDAEMIA [None]
  - HYPERCHOLESTEROLAEMIA [None]
  - BLOOD CHOLESTEROL INCREASED [None]
  - PNEUMOBILIA [None]
  - DIABETIC COMPLICATION [None]
  - DIABETIC KETOACIDOSIS [None]
  - PANCREATITIS ACUTE [None]
  - VISION BLURRED [None]
  - FATIGUE [None]
  - CHOLELITHIASIS [None]
  - PANCREATITIS [None]
  - BLOOD TRIGLYCERIDES INCREASED [None]
  - INCREASED APPETITE [None]
